FAERS Safety Report 6011478-4 (Version None)
Quarter: 2008Q4

REPORT INFORMATION
  Report Type: 
  Country: None (occurrence: None)
  Receive Date: 20081217
  Receipt Date: 20081217
  Transmission Date: 20090506
  Serious: Yes (Other)
  Sender: FDA-Public Use
  Company Number: None

PATIENT
  Sex: Female
  Weight: 60.782 kg

DRUGS (1)
  1. ACTONEL [Suspect]
     Dosage: 1 TABLET PER MONTH-
     Dates: start: 20081214, end: 20081214

REACTIONS (2)
  - HEART RATE INCREASED [None]
  - INFLUENZA [None]
